FAERS Safety Report 10242304 (Version 1)
Quarter: 2014Q2

REPORT INFORMATION
  Report Type: Spontaneous
  Country: GB (occurrence: GB)
  Receive Date: 20140617
  Receipt Date: 20140617
  Transmission Date: 20141212
  Serious: Yes (Other)
  Sender: FDA-Public Use
  Company Number: GB-PFIZER INC-2014162633

PATIENT
  Age: 31 Year
  Sex: Female
  Weight: 57.15 kg

DRUGS (4)
  1. PIROXICAM [Suspect]
     Indication: TENDONITIS
     Dosage: GEL USED 4 TIMES DAILY
     Route: 061
     Dates: start: 20140527, end: 20140605
  2. CO-CODAMOL [Concomitant]
  3. FELDENE [Concomitant]
  4. NAPROXEN [Concomitant]

REACTIONS (2)
  - Oedema peripheral [Not Recovered/Not Resolved]
  - Pain in extremity [Not Recovered/Not Resolved]
